FAERS Safety Report 7600175-7 (Version None)
Quarter: 2011Q2

REPORT INFORMATION
  Report Type: 
  Country: None (occurrence: None)
  Receive Date: 20110629
  Receipt Date: 20110620
  Transmission Date: 20111010
  Serious: Yes (Hospitalization)
  Sender: FDA-Public Use
  Company Number: 2011001464

PATIENT
  Age: 68 Year
  Sex: Female
  Weight: 60 kg

DRUGS (11)
  1. CALCIUM + D (CALCIUM WITH VITAMIN D) [Concomitant]
  2. LEVEMIR [Concomitant]
  3. LOMOTIL [Concomitant]
  4. OMEPRAZOLE [Concomitant]
  5. PRANDIN [Concomitant]
  6. FERROUS SULFATE TAB [Concomitant]
  7. PREDNISONE [Concomitant]
  8. MELOXICAM [Concomitant]
  9. VALTREX [Concomitant]
  10. ERLOTINIB HYDROCHLORIDE [Suspect]
     Indication: LUNG NEOPLASM MALIGNANT
     Dosage: 150 MG, UID/QD, ORAL
     Route: 048
     Dates: start: 20101213, end: 20110325
  11. SORAFENIB (SORAFENIB) TABLET [Suspect]
     Indication: LUNG NEOPLASM MALIGNANT
     Dosage: 400 MG, BID, ORAL
     Route: 048
     Dates: start: 20101213, end: 20110325

REACTIONS (2)
  - SINUS TACHYCARDIA [None]
  - CARDIAC FAILURE CONGESTIVE [None]
